FAERS Safety Report 11422099 (Version 2)
Quarter: 2024Q3

REPORT INFORMATION
  Report Type: Spontaneous
  Country: US (occurrence: US)
  Receive Date: 20150827
  Receipt Date: 20240807
  Transmission Date: 20241017
  Serious: Yes (Hospitalization, Other)
  Sender: ACCORD
  Company Number: US-ACCORD-033321

PATIENT
  Age: 17 Year
  Sex: Male

DRUGS (1)
  1. TACROLIMUS [Suspect]
     Active Substance: TACROLIMUS
     Indication: Nephrotic syndrome

REACTIONS (5)
  - Megakaryocytes abnormal [Recovered/Resolved]
  - Erythropoiesis abnormal [Recovered/Resolved]
  - Pancytopenia [Recovered/Resolved]
  - Myelofibrosis [Recovered/Resolved]
  - Off label use [Unknown]
